FAERS Safety Report 20426669 (Version 1)
Quarter: 2022Q1

REPORT INFORMATION
  Report Type: Report from Study
  Country: US (occurrence: US)
  Receive Date: 20220204
  Receipt Date: 20220204
  Transmission Date: 20220423
  Serious: No
  Sender: FDA-Public Use
  Company Number: US-EXELIXIS-CABO-21045694

PATIENT
  Age: 69 Year
  Sex: Female

DRUGS (1)
  1. CABOMETYX [Suspect]
     Active Substance: CABOZANTINIB S-MALATE
     Indication: Uterine cancer
     Dosage: 60 MG, QD
     Dates: start: 20211008

REACTIONS (15)
  - Feeling abnormal [Unknown]
  - Sinusitis [Unknown]
  - Tenderness [Unknown]
  - Eye pruritus [Unknown]
  - Lacrimation increased [Unknown]
  - Rash papular [Unknown]
  - Hyperthyroidism [Unknown]
  - Platelet count decreased [Unknown]
  - Stomatitis [Unknown]
  - Haematochezia [Unknown]
  - Headache [Unknown]
  - Muscle spasms [Unknown]
  - White blood cell count decreased [Unknown]
  - Neutrophil count decreased [Unknown]
  - Off label use [Unknown]

NARRATIVE: CASE EVENT DATE: 20211122
